FAERS Safety Report 6232387-1 (Version None)
Quarter: 2009Q2

REPORT INFORMATION
  Report Type: 
  Country: None (occurrence: None)
  Receive Date: 20090617
  Receipt Date: 20090608
  Transmission Date: 20091009
  Serious: Yes (Other)
  Sender: FDA-Public Use
  Company Number: PHHY2009JP17635

PATIENT
  Age: 55 Year
  Sex: Female

DRUGS (2)
  1. ZOMETA [Suspect]
     Indication: METASTASES TO BONE
     Dosage: 4 MG, UNK
     Route: 041
  2. ZOMETA [Suspect]
     Indication: BREAST CANCER

REACTIONS (3)
  - GINGIVAL SWELLING [None]
  - GINGIVITIS [None]
  - OSTEOMYELITIS [None]
